FAERS Safety Report 17129491 (Version 1)
Quarter: 2019Q4

REPORT INFORMATION
  Report Type: Spontaneous
  Country: US (occurrence: US)
  Receive Date: 20191209
  Receipt Date: 20191209
  Transmission Date: 20200122
  Serious: No
  Sender: FDA-Public Use
  Company Number: US-PFIZER INC-2019527587

PATIENT
  Age: 52 Year
  Sex: Female

DRUGS (1)
  1. XELJANZ XR [Suspect]
     Active Substance: TOFACITINIB CITRATE
     Dosage: 11 MG, UNK
     Dates: start: 20190912, end: 20191005

REACTIONS (6)
  - Ear discomfort [Unknown]
  - Hypertension [Unknown]
  - Oral discomfort [Unknown]
  - Heart rate increased [Unknown]
  - Burning sensation [Unknown]
  - Throat irritation [Unknown]
